FAERS Safety Report 25263052 (Version 2)
Quarter: 2025Q2

REPORT INFORMATION
  Report Type: Report from Study
  Country: US (occurrence: US)
  Receive Date: 20250502
  Receipt Date: 20250619
  Transmission Date: 20250717
  Serious: Yes (Hospitalization)
  Sender: EISAI
  Company Number: US-Eisai-EC-2025-188393

PATIENT
  Age: 66 Year
  Sex: Female

DRUGS (3)
  1. LENVIMA [Suspect]
     Active Substance: LENVATINIB
     Indication: Endometrial cancer
     Dates: start: 202412, end: 2025
  2. LENVIMA [Suspect]
     Active Substance: LENVATINIB
     Dates: start: 2025, end: 20250331
  3. LENVIMA [Suspect]
     Active Substance: LENVATINIB
     Dosage: DOSE UNKNOWN (4 MG OR 8 MG)
     Dates: start: 2025

REACTIONS (2)
  - Rash [Recovering/Resolving]
  - Blood pressure increased [Not Recovered/Not Resolved]

NARRATIVE: CASE EVENT DATE: 20250101
